FAERS Safety Report 17307320 (Version 1)
Quarter: 2020Q1

REPORT INFORMATION
  Report Type: Spontaneous
  Country: CO (occurrence: CO)
  Receive Date: 20200123
  Receipt Date: 20200123
  Transmission Date: 20200409
  Serious: Yes (Other)
  Sender: FDA-Public Use
  Company Number: CO-AUROBINDO-AUR-APL-2019-072623

PATIENT
  Age: 4 Year
  Sex: Female
  Weight: 98 kg

DRUGS (5)
  1. MEROGRAM 500MG INJECTION USP [Suspect]
     Active Substance: MEROPENEM
     Dosage: 420 MILLIGRAM, 3 TIMES A DAY
     Route: 042
     Dates: start: 20191018, end: 20191024
  2. MEROGRAM 500MG INJECTION USP [Suspect]
     Active Substance: MEROPENEM
     Indication: BACTERIAL SEPSIS
     Dosage: 420 MILLIGRAM, 3 TIMES A DAY
     Route: 042
     Dates: start: 20191018, end: 20191024
  3. VANCOMYCIN [Concomitant]
     Active Substance: VANCOMYCIN
     Indication: BACTERIAL SEPSIS
     Dosage: UNK
     Route: 065
  4. MEROGRAM 1000 MG INJECTION USP [Suspect]
     Active Substance: MEROPENEM
     Dosage: 420 MILLIGRAM, 3 TIMES A DAY
     Route: 042
     Dates: start: 20191018, end: 20191024
  5. MEROGRAM 1000 MG INJECTION USP [Suspect]
     Active Substance: MEROPENEM
     Indication: BACTERIAL SEPSIS
     Dosage: 420 MILLIGRAM, 3 TIMES A DAY
     Route: 042
     Dates: start: 20191018, end: 20191024

REACTIONS (1)
  - Drug ineffective [Not Recovered/Not Resolved]

NARRATIVE: CASE EVENT DATE: 20191021
